FAERS Safety Report 7338287-8 (Version None)
Quarter: 2011Q1

REPORT INFORMATION
  Report Type: 
  Country: None (occurrence: None)
  Receive Date: 20110224
  Receipt Date: 20110211
  Transmission Date: 20110831
  Serious: Yes (Other)
  Sender: FDA-Public Use
  Company Number: DSJ-2011-03068

PATIENT
  Age: 81 Year
  Sex: Female

DRUGS (4)
  1. METOPROLOL [Concomitant]
  2. SIMVASTATIN [Concomitant]
  3. ALISKIREN [Concomitant]
  4. BENICAR [Suspect]
     Indication: HYPERTENSION
     Dosage: 40 MG (40 MG, 1 IN 1 D), PER ORAL
     Route: 048
     Dates: start: 20100401, end: 20110209

REACTIONS (6)
  - PULMONARY HYPERTENSION [None]
  - CARDIOMEGALY [None]
  - DRUG INEFFECTIVE [None]
  - HYPERCHOLESTEROLAEMIA [None]
  - CONDITION AGGRAVATED [None]
  - FATIGUE [None]
